FAERS Safety Report 4628236-5 (Version None)
Quarter: 2005Q2

REPORT INFORMATION
  Report Type: 
  Country: None (occurrence: None)
  Receive Date: 20050401
  Receipt Date: 20050325
  Transmission Date: 20051028
  Serious: Yes (Life-Threatening, Other)
  Sender: FDA-Public Use
  Company Number: S05-USA-00683-01

PATIENT
  Age: 34 Year
  Sex: Female

DRUGS (6)
  1. LEXAPRO [Suspect]
     Indication: DEPRESSION
     Dosage: 20 MG QD PO
     Route: 048
     Dates: start: 20041205, end: 20041201
  2. LEXAPRO [Suspect]
     Indication: INSOMNIA
     Dosage: 20 MG QD PO
     Route: 048
     Dates: start: 20041205, end: 20041201
  3. LEXAPRO [Suspect]
     Indication: DEPRESSION
     Dosage: 10 MG QD PO
     Route: 048
     Dates: start: 20041120, end: 20041204
  4. LEXAPRO [Suspect]
     Indication: INSOMNIA
     Dosage: 10 MG QD PO
     Route: 048
     Dates: start: 20041120, end: 20041204
  5. KLONOPIN [Concomitant]
  6. TRAZODONE HCL [Concomitant]

REACTIONS (9)
  - BURNS SECOND DEGREE [None]
  - BURNS THIRD DEGREE [None]
  - COMPLETED SUICIDE [None]
  - DEPRESSION [None]
  - PARANOIA [None]
  - PSYCHOTIC DISORDER [None]
  - SUICIDAL IDEATION [None]
  - SUICIDE ATTEMPT [None]
  - SUSPICIOUSNESS [None]
